FAERS Safety Report 5266681-8 (Version None)
Quarter: 2007Q1

REPORT INFORMATION
  Report Type: 
  Country: None (occurrence: None)
  Receive Date: 20070312
  Receipt Date: 20070222
  Transmission Date: 20070707
  Serious: Yes (Hospitalization)
  Sender: FDA-Public Use
  Company Number: 2007EU000466

PATIENT
  Age: 7 Year
  Sex: Male
  Weight: 19 kg

DRUGS (1)
  1. FK506 - OINTMENT (TACROLIMUS) OINTMENT [Suspect]
     Dosage: UNK, UNKNOWN/D, TOPICAL
     Route: 061
     Dates: start: 20060523, end: 20060805

REACTIONS (1)
  - APPENDICITIS [None]
